FAERS Safety Report 7747387-X (Version None)
Quarter: 2011Q3

REPORT INFORMATION
  Report Type: 
  Country: None (occurrence: None)
  Receive Date: 20110913
  Receipt Date: 20110912
  Transmission Date: 20111222
  Serious: Yes (Other)
  Sender: FDA-Public Use
  Company Number: US-GLAXOSMITHKLINE-A0944175A

PATIENT
  Sex: Female

DRUGS (3)
  1. TYLENOL-500 [Concomitant]
  2. PROMACTA [Suspect]
     Indication: IDIOPATHIC THROMBOCYTOPENIC PURPURA
     Dosage: 50MG PER DAY
     Route: 048
     Dates: start: 20100701
  3. NEXIUM [Concomitant]

REACTIONS (1)
  - PLATELET COUNT ABNORMAL [None]
